FAERS Safety Report 8179953 (Version 4)
Quarter: 2013Q4

REPORT INFORMATION
  Report Type: Spontaneous
  Country: FR (occurrence: FR)
  Receive Date: 20111013
  Receipt Date: 20131210
  Transmission Date: 20140711
  Serious: Yes (Life-Threatening, Hospitalization, Other)
  Sender: FDA-Public Use
  Company Number: FR-ELI_LILLY_AND_COMPANY-FR201109008231

PATIENT
  Age: 41 Year
  Sex: Female
  Weight: 37 kg

DRUGS (12)
  1. ZYPREXA [Suspect]
     Dosage: 20 MG, UNK
     Route: 048
     Dates: start: 20110430, end: 20110606
  2. ZYPREXA [Suspect]
     Dosage: 20 MG, UNK
     Route: 048
     Dates: start: 20110620, end: 20110704
  3. DEPAKOTE [Concomitant]
     Dosage: 500 MG, UNK
     Route: 048
     Dates: start: 20110430, end: 20110606
  4. DEPAKOTE [Concomitant]
     Dosage: 500 MG, UNK
     Route: 048
     Dates: start: 20110622, end: 20110627
  5. TERALITHE [Concomitant]
     Dosage: 250 MG, UNK
     Route: 048
     Dates: start: 20110606, end: 20110703
  6. TERCIAN [Concomitant]
     Dosage: UNK
     Dates: start: 20110606, end: 20110630
  7. TERCIAN [Concomitant]
     Dosage: UNK
     Dates: start: 20110811, end: 20110816
  8. IMOVANE [Concomitant]
     Dosage: UNK
     Dates: start: 20110606
  9. PARKINANE [Concomitant]
     Dosage: 5 MG, UNK
     Dates: start: 20110615, end: 20110704
  10. HALDOL [Concomitant]
     Dosage: UNK
     Dates: start: 20110620, end: 20110630
  11. SERESTA [Concomitant]
     Dosage: UNK
     Dates: start: 20110430, end: 20110606
  12. RISPERDAL [Concomitant]
     Dosage: UNK
     Dates: start: 20110606, end: 20110620

REACTIONS (23)
  - Toxic epidermal necrolysis [Recovering/Resolving]
  - Septic shock [Recovering/Resolving]
  - Ventricular fibrillation [Recovering/Resolving]
  - Circulatory collapse [Recovering/Resolving]
  - Drug reaction with eosinophilia and systemic symptoms [Recovered/Resolved]
  - Acute hepatic failure [Unknown]
  - Agranulocytosis [Unknown]
  - Hepatocellular injury [Recovering/Resolving]
  - Major depression [Unknown]
  - Depressive delusion [Unknown]
  - Cholestasis [Recovering/Resolving]
  - Pancytopenia [Recovering/Resolving]
  - Adrenal insufficiency [Recovering/Resolving]
  - Weight decreased [Recovering/Resolving]
  - Alopecia universalis [Recovering/Resolving]
  - Onycholysis [Recovering/Resolving]
  - Eschar [Recovering/Resolving]
  - Sleep disorder [Unknown]
  - Pigmentation disorder [Unknown]
  - Dysgeusia [Unknown]
  - Visual acuity reduced [Unknown]
  - Nightmare [Unknown]
  - Asthenia [Unknown]
